FAERS Safety Report 5134259-2 (Version None)
Quarter: 2006Q4

REPORT INFORMATION
  Report Type: 
  Country: None (occurrence: None)
  Receive Date: 20061019
  Receipt Date: 20061006
  Transmission Date: 20070319
  Serious: No
  Sender: FDA-Public Use
  Company Number: CH200610001308

PATIENT
  Sex: Male

DRUGS (8)
  1. ZYPREXA [Suspect]
     Indication: OBSESSIVE-COMPULSIVE DISORDER
     Dosage: SEE IMAGE
     Route: 048
     Dates: start: 20050215, end: 20050303
  2. ZYPREXA [Suspect]
     Indication: OBSESSIVE-COMPULSIVE DISORDER
     Dosage: SEE IMAGE
     Route: 048
     Dates: start: 20050304, end: 20050309
  3. ZYPREXA [Suspect]
     Indication: OBSESSIVE-COMPULSIVE DISORDER
     Dosage: SEE IMAGE
     Route: 048
     Dates: start: 20050310, end: 20050315
  4. ZYPREXA [Suspect]
     Indication: OBSESSIVE-COMPULSIVE DISORDER
     Dosage: SEE IMAGE
     Route: 048
     Dates: start: 20060222, end: 20060929
  5. ZYPREXA [Suspect]
     Indication: OBSESSIVE-COMPULSIVE DISORDER
     Dosage: SEE IMAGE
     Route: 048
     Dates: start: 20000101
  6. ZYPREXA [Suspect]
     Indication: OBSESSIVE-COMPULSIVE DISORDER
     Dosage: SEE IMAGE
     Route: 048
     Dates: start: 20050316
  7. SERTRALINE [Concomitant]
  8. RISPERDAL                                         /SWE/ (RISPERIDONE) [Concomitant]

REACTIONS (6)
  - AGGRESSION [None]
  - ANXIETY [None]
  - LEUKOPENIA [None]
  - MONOCYTE COUNT DECREASED [None]
  - NEUTROPHIL COUNT DECREASED [None]
  - THROMBOCYTOPENIA [None]
